FAERS Safety Report 14728738 (Version 7)
Quarter: 2019Q3

REPORT INFORMATION
  Report Type: Spontaneous
  Country: ES (occurrence: ES)
  Receive Date: 20180406
  Receipt Date: 20190809
  Transmission Date: 20191004
  Serious: Yes (Death, Life-Threatening, Hospitalization, Other)
  Sender: FDA-Public Use
  Company Number: ES-ELI_LILLY_AND_COMPANY-ES201804001031

PATIENT
  Age: 81 Year
  Sex: Male

DRUGS (20)
  1. ATORVASTATIN [Concomitant]
     Active Substance: ATORVASTATIN
     Indication: HYPERTENSION
     Dosage: UNK, UNKNOWN
     Route: 065
  2. HALOPERIDOL. [Interacting]
     Active Substance: HALOPERIDOL
     Indication: COGNITIVE DISORDER
  3. ENALAPRIL [Suspect]
     Active Substance: ENALAPRIL
     Indication: HYPERTENSION
     Dosage: UNK, UNKNOWN
     Route: 065
  4. ACETYLSALICYLIC ACID [Concomitant]
     Active Substance: ASPIRIN
     Indication: PRODUCT USED FOR UNKNOWN INDICATION
     Dosage: UNK, UNKNOWN
     Route: 065
  5. HALOPERIDOL. [Interacting]
     Active Substance: HALOPERIDOL
     Indication: MAJOR DEPRESSION
     Dosage: 0.8 MG, DAILY
     Route: 048
     Dates: start: 201406, end: 20150708
  6. FESOTERODINE [Concomitant]
     Active Substance: FESOTERODINE
     Indication: PRODUCT USED FOR UNKNOWN INDICATION
     Dosage: UNK, UNKNOWN
     Route: 065
  7. CALCIFEDIOL [Concomitant]
     Active Substance: CALCIFEDIOL
     Indication: PRODUCT USED FOR UNKNOWN INDICATION
     Dosage: UNK, UNKNOWN
     Route: 065
  8. OMEPRAZOLE. [Concomitant]
     Active Substance: OMEPRAZOLE
     Indication: PRODUCT USED FOR UNKNOWN INDICATION
     Dosage: UNK, UNKNOWN
     Route: 065
  9. DIGOXIN. [Concomitant]
     Active Substance: DIGOXIN
     Indication: HYPERTENSION
     Dosage: UNK, UNKNOWN
     Route: 065
  10. BISOPROLOL [Suspect]
     Active Substance: BISOPROLOL
     Indication: HYPERTENSION
     Dosage: UNK, UNKNOWN
     Route: 065
  11. CYPROHEPTADINE. [Suspect]
     Active Substance: CYPROHEPTADINE
     Indication: PRODUCT USED FOR UNKNOWN INDICATION
     Dosage: 4 MG, EVERY 8 HRS
     Route: 065
  12. DABIGATRAN ETEXILATE [Concomitant]
     Active Substance: DABIGATRAN ETEXILATE
     Indication: CEREBROVASCULAR ACCIDENT
     Dosage: UNK, UNKNOWN
     Route: 065
  13. DABIGATRAN ETEXILATE [Concomitant]
     Active Substance: DABIGATRAN ETEXILATE
     Indication: ATRIAL FIBRILLATION
  14. DIGOXIN. [Concomitant]
     Active Substance: DIGOXIN
     Indication: ATRIAL FIBRILLATION
  15. CALCIUM [Concomitant]
     Active Substance: CALCIUM
     Indication: PRODUCT USED FOR UNKNOWN INDICATION
     Dosage: UNK, UNKNOWN
     Route: 065
  16. CALCIUM CARBONATE. [Concomitant]
     Active Substance: CALCIUM CARBONATE
     Indication: PRODUCT USED FOR UNKNOWN INDICATION
     Dosage: UNK, UNKNOWN
     Route: 065
  17. HALOPERIDOL. [Interacting]
     Active Substance: HALOPERIDOL
     Indication: BEHAVIOUR DISORDER
  18. CYMBALTA [Suspect]
     Active Substance: DULOXETINE HYDROCHLORIDE
     Indication: DEPRESSION
     Dosage: 60 MG, BID
     Route: 048
     Dates: start: 201310, end: 201507
  19. ATORVASTATIN [Concomitant]
     Active Substance: ATORVASTATIN
     Indication: ATRIAL FIBRILLATION
  20. LEVETIRACETAM. [Concomitant]
     Active Substance: LEVETIRACETAM
     Indication: EPILEPSY
     Dosage: UNK, UNKNOWN
     Route: 065

REACTIONS (12)
  - Tachycardia [Fatal]
  - Hyperhidrosis [Fatal]
  - Hypertension [Fatal]
  - Dyskinesia [Fatal]
  - Drug interaction [Unknown]
  - Leukocytosis [Fatal]
  - Pyrexia [Fatal]
  - Tachypnoea [Fatal]
  - Lactic acidosis [Fatal]
  - Acute kidney injury [Fatal]
  - Serotonin syndrome [Fatal]
  - Muscle rigidity [Fatal]

NARRATIVE: CASE EVENT DATE: 20150708
